FAERS Safety Report 12146104 (Version 1)
Quarter: 2016Q1

REPORT INFORMATION
  Report Type: Spontaneous
  Country: US (occurrence: US)
  Receive Date: 20160304
  Receipt Date: 20160304
  Transmission Date: 20160526
  Serious: No
  Sender: FDA-Public Use
  Company Number: US-PERRIGO-15US008993

PATIENT
  Age: 46 Year
  Sex: Female
  Weight: 72.56 kg

DRUGS (2)
  1. NAPROXEN 220 MG 140 [Suspect]
     Active Substance: NAPROXEN
     Indication: HEADACHE
     Dosage: 220 MG, TWICE
     Route: 048
     Dates: start: 20150818, end: 20150818
  2. NAPROXEN 220 MG 140 [Suspect]
     Active Substance: NAPROXEN
     Dosage: 220 MG, TWICE
     Route: 048
     Dates: start: 20150824, end: 20150824

REACTIONS (2)
  - Blister [Recovered/Resolved]
  - Rash [Recovered/Resolved]

NARRATIVE: CASE EVENT DATE: 20150819
